FAERS Safety Report 20920193 (Version 1)
Quarter: 2022Q2

REPORT INFORMATION
  Report Type: Spontaneous
  Country: JP (occurrence: JP)
  Receive Date: 20220606
  Receipt Date: 20220606
  Transmission Date: 20220720
  Serious: Yes (Death, Other)
  Sender: FDA-Public Use
  Company Number: JP-JAZZ-2022-JP-018487

PATIENT
  Age: 67 Year
  Sex: Female
  Weight: 45 kg

DRUGS (1)
  1. DEFITELIO [Suspect]
     Active Substance: DEFIBROTIDE SODIUM
     Indication: Venoocclusive liver disease
     Dosage: 25 MILLIGRAM/KILOGRAM
     Route: 042
     Dates: start: 20220318, end: 20220408

REACTIONS (1)
  - Altered state of consciousness [Fatal]

NARRATIVE: CASE EVENT DATE: 20220101
